FAERS Safety Report 20137517 (Version 2)
Quarter: 2021Q4

REPORT INFORMATION
  Report Type: Spontaneous
  Country: US (occurrence: US)
  Receive Date: 20211201
  Receipt Date: 20211202
  Transmission Date: 20220303
  Serious: Yes (Other)
  Sender: FDA-Public Use
  Company Number: US-ABBVIE-21K-163-4179520-00

PATIENT
  Age: 78 Year
  Sex: Female
  Weight: 67.646 kg

DRUGS (2)
  1. RINVOQ [Suspect]
     Active Substance: UPADACITINIB
     Indication: Rheumatoid arthritis
     Route: 048
     Dates: start: 2019
  2. CALCIUM [Concomitant]
     Active Substance: CALCIUM
     Indication: Product used for unknown indication

REACTIONS (3)
  - Dupuytren^s contracture [Recovering/Resolving]
  - Surgical failure [Unknown]
  - Limb operation [Unknown]

NARRATIVE: CASE EVENT DATE: 20210113
